FAERS Safety Report 8352133-5 (Version None)
Quarter: 2012Q2

REPORT INFORMATION
  Report Type: 
  Country: None (occurrence: None)
  Receive Date: 20120510
  Receipt Date: 20120510
  Transmission Date: 20120825
  Serious: No
  Sender: FDA-Public Use
  Company Number: None

PATIENT

DRUGS (1)
  1. CREST W/ FLUORIDE [Suspect]

REACTIONS (2)
  - GINGIVAL BLEEDING [None]
  - GINGIVAL RECESSION [None]
